FAERS Safety Report 11872275 (Version 2)
Quarter: 2016Q1

REPORT INFORMATION
  Report Type: Not Available
  Country: SE (occurrence: SE)
  Receive Date: 20151228
  Receipt Date: 20160205
  Transmission Date: 20160526
  Serious: Yes (Hospitalization, Other)
  Sender: FDA-Public Use
  Company Number: SE-MUNDIPHARMA DS AND PHARMACOVIGILANCE-GBR-2015-0032894

PATIENT
  Age: 35 Year
  Sex: Female

DRUGS (7)
  1. TARGINIQ ER [Suspect]
     Active Substance: NALOXONE HYDROCHLORIDE\OXYCODONE HYDROCHLORIDE
     Indication: BACK PAIN
     Dosage: 10 MG, UNK
     Route: 048
     Dates: start: 20150808, end: 20150808
  2. DESLORATADINE. [Concomitant]
     Active Substance: DESLORATADINE
  3. TREO COMP                          /00182101/ [Concomitant]
  4. PANTOPRAZOLE [Concomitant]
     Active Substance: PANTOPRAZOLE SODIUM
  5. SUMATRIPTAN. [Concomitant]
     Active Substance: SUMATRIPTAN
  6. PANODIL [Concomitant]
     Active Substance: ACETAMINOPHEN
  7. TREO [Concomitant]
     Active Substance: ASPIRIN\CAFFEINE

REACTIONS (3)
  - Paraesthesia [Recovered/Resolved]
  - Muscle spasms [Recovered/Resolved]
  - Nausea [Recovered/Resolved]

NARRATIVE: CASE EVENT DATE: 20150808
